FAERS Safety Report 6065631-4 (Version None)
Quarter: 2009Q1

REPORT INFORMATION
  Report Type: 
  Country: None (occurrence: None)
  Receive Date: 20090204
  Receipt Date: 20090128
  Transmission Date: 20090719
  Serious: Yes (Death)
  Sender: FDA-Public Use
  Company Number: US-GILEAD-2009-0020047

PATIENT
  Sex: Female
  Weight: 45.4 kg

DRUGS (15)
  1. LETAIRIS [Suspect]
     Indication: PULMONARY ARTERIAL HYPERTENSION
     Route: 048
     Dates: start: 20080424, end: 20090119
  2. NITROGLYCERIN [Concomitant]
  3. VERAPAMIL [Concomitant]
  4. VITAMIN B COMPLEX CAP [Concomitant]
  5. ASCORBIC ACID [Concomitant]
  6. COMBIVENT [Concomitant]
  7. COUMADIN [Concomitant]
  8. HYDROCHLOROTHIAZIDE [Concomitant]
  9. CALCIUM +D [Concomitant]
  10. OXYGEN [Concomitant]
  11. TRUSOPT [Concomitant]
  12. TRAVATAN [Concomitant]
  13. RESTORIL [Concomitant]
  14. FLECAINIDE ACETATE [Concomitant]
  15. MULTI-VITAMIN [Concomitant]

REACTIONS (2)
  - ACUTE RESPIRATORY FAILURE [None]
  - PULMONARY HYPERTENSION [None]
